FAERS Safety Report 21062797 (Version 1)
Quarter: 2022Q3

REPORT INFORMATION
  Report Type: Spontaneous
  Country: PL (occurrence: PL)
  Receive Date: 20220711
  Receipt Date: 20220711
  Transmission Date: 20221026
  Serious: Yes (Other)
  Sender: FDA-Public Use
  Company Number: PL-002147023-NVSC2022PL142594

PATIENT
  Sex: Male

DRUGS (24)
  1. SPRYCEL [Suspect]
     Active Substance: DASATINIB
     Indication: Product used for unknown indication
     Dosage: 100 MG, QD
     Route: 065
     Dates: start: 20200601, end: 20200630
  2. TASIGNA [Suspect]
     Active Substance: NILOTINIB
     Indication: Chronic myeloid leukaemia
     Dosage: 400 MG, QD (2X400 MG)
     Route: 065
     Dates: start: 20180927, end: 20200220
  3. ICLUSIG [Suspect]
     Active Substance: PONATINIB
     Indication: Product used for unknown indication
     Dosage: 22.5 MG, QD
     Route: 065
     Dates: start: 20200701
  4. ICLUSIG [Suspect]
     Active Substance: PONATINIB
     Dosage: 22.5 MG, QD
     Route: 065
     Dates: start: 20210118, end: 20210419
  5. ICLUSIG [Suspect]
     Active Substance: PONATINIB
     Dosage: 45 MG, QD
     Route: 065
     Dates: start: 20200824
  6. BOSULIF [Suspect]
     Active Substance: BOSUTINIB MONOHYDRATE
     Indication: Product used for unknown indication
     Dosage: 500 MG, QD
     Route: 065
     Dates: start: 20210420, end: 20210518
  7. BOSULIF [Suspect]
     Active Substance: BOSUTINIB MONOHYDRATE
     Dosage: 400 MG, QD
     Route: 065
     Dates: start: 20210519, end: 20211201
  8. BOSULIF [Suspect]
     Active Substance: BOSUTINIB MONOHYDRATE
     Dosage: 400 MG, QD
     Route: 065
     Dates: start: 20200305, end: 20200405
  9. BOSULIF [Suspect]
     Active Substance: BOSUTINIB MONOHYDRATE
     Dosage: 300 MG, QD
     Route: 065
     Dates: start: 20200221, end: 20200304
  10. BOSULIF [Suspect]
     Active Substance: BOSUTINIB MONOHYDRATE
     Dosage: 600 MG, QD
     Route: 065
     Dates: start: 20200406, end: 20200601
  11. PLAVIX [Concomitant]
     Active Substance: CLOPIDOGREL BISULFATE
     Indication: Product used for unknown indication
     Dosage: 75 MG (1X1)
     Route: 065
     Dates: end: 20210713
  12. FOLIC ACID [Concomitant]
     Active Substance: FOLIC ACID
     Indication: Product used for unknown indication
     Dosage: 15 MG (1-0-1)
     Route: 065
  13. ISOSORBIDE MONONITRATE [Concomitant]
     Active Substance: ISOSORBIDE MONONITRATE
     Indication: Product used for unknown indication
     Dosage: 50 MG (1X1)
     Route: 065
  14. BIBLOC [BISOPROLOL FUMARATE] [Concomitant]
     Indication: Product used for unknown indication
     Dosage: 5 MG (1X1)
     Route: 065
  15. MOLSIDOMINE [Concomitant]
     Active Substance: MOLSIDOMINE
     Indication: Product used for unknown indication
     Dosage: 4 MG (1X1, IF NEEDED)
     Route: 065
  16. VEGEVIT [Concomitant]
     Indication: Product used for unknown indication
     Dosage: 1 DOSAGE FORM (AFTER MEAL)
     Route: 065
  17. RAMIPRIL [Concomitant]
     Active Substance: RAMIPRIL
     Indication: Product used for unknown indication
     Dosage: 10 MG (1X1)
     Route: 065
  18. ATORVASTATIN CALCIUM [Concomitant]
     Active Substance: ATORVASTATIN CALCIUM
     Indication: Product used for unknown indication
     Dosage: 40 MG (1X1)
     Route: 065
  19. LECALPIN [Concomitant]
     Indication: Product used for unknown indication
     Dosage: 10 MG (1X1)
     Route: 065
  20. ASPIRIN [Concomitant]
     Active Substance: ASPIRIN
     Indication: Product used for unknown indication
     Dosage: 75 MG (1X1)
     Route: 065
     Dates: end: 20210713
  21. CONTIX [PANTOPRAZOLE SODIUM SESQUIHYDRATE] [Concomitant]
     Indication: Product used for unknown indication
     Dosage: 40 MG (1X1)
     Route: 065
  22. ETHAMSYLATE [Concomitant]
     Active Substance: ETHAMSYLATE
     Indication: Product used for unknown indication
     Dosage: 500 MG, QD (3X12 TABL)
     Route: 065
  23. ENOXAPARIN SODIUM [Concomitant]
     Active Substance: ENOXAPARIN SODIUM
     Indication: Product used for unknown indication
     Dosage: 40 MG, QD
     Route: 065
     Dates: end: 20210713
  24. DEVIKAP [Concomitant]
     Indication: Product used for unknown indication
     Dosage: 2000 UNK (U/D)
     Route: 065

REACTIONS (2)
  - Cytogenetic analysis abnormal [Unknown]
  - Drug resistance [Unknown]
